FAERS Safety Report 4427438-0 (Version None)
Quarter: 2004Q3

REPORT INFORMATION
  Report Type: 
  Country: None (occurrence: None)
  Receive Date: 20040812
  Receipt Date: 20040802
  Transmission Date: 20050211
  Serious: Yes (Other)
  Sender: FDA-Public Use
  Company Number: S04-USA-03511-01

PATIENT
  Sex: Female
  Weight: 63.5036 kg

DRUGS (2)
  1. LEXAPRO [Suspect]
     Indication: DEPRESSION
  2. METOPROLOL [Suspect]
     Indication: DEPRESSION

REACTIONS (4)
  - BLOOD PRESSURE DECREASED [None]
  - DRUG INTERACTION [None]
  - LOSS OF CONSCIOUSNESS [None]
  - SYNCOPE [None]
